FAERS Safety Report 5065221-6 (Version None)
Quarter: 2006Q3

REPORT INFORMATION
  Report Type: 
  Country: None (occurrence: None)
  Receive Date: 20060705
  Receipt Date: 20060403
  Transmission Date: 20061208
  Serious: Yes (Hospitalization)
  Sender: FDA-Public Use
  Company Number: US-2005-024993

PATIENT
  Age: 35 Year
  Sex: Female

DRUGS (4)
  1. YASMIN [Suspect]
     Indication: ORAL CONTRACEPTION
     Dosage: 1 TAB(S), 1X/DAY, ORAL
     Route: 048
     Dates: start: 20020201
  2. FIBERCON (POLYCARBOPHIL CALCIUM) [Concomitant]
  3. DOCUSATE (DOCUSATE) [Concomitant]
  4. RIZATRIPTAN (RIZATRIPTAN) [Concomitant]

REACTIONS (1)
  - DEEP VEIN THROMBOSIS [None]
